APPROVED DRUG PRODUCT: GENTAMICIN SULFATE
Active Ingredient: GENTAMICIN SULFATE
Strength: EQ 10MG BASE/ML
Dosage Form/Route: INJECTABLE;INJECTION
Application: A062507 | Product #001
Applicant: SOLOPAK LABORATORIES INC
Approved: Jun 6, 1985 | RLD: No | RS: No | Type: DISCN